FAERS Safety Report 4342918-4 (Version None)
Quarter: 2004Q1

REPORT INFORMATION
  Report Type: 
  Country: None (occurrence: None)
  Receive Date: 20040325
  Receipt Date: 20040129
  Transmission Date: 20041129
  Serious: No
  Sender: FDA-Public Use
  Company Number: USA030741474

PATIENT
  Age: 68 Year
  Sex: Female
  Weight: 46 kg

DRUGS (7)
  1. FORTEO [Suspect]
     Indication: OSTEOPOROSIS
     Dosage: 20 UG/DAY
     Dates: start: 20030619
  2. COZAAR [Concomitant]
  3. SYNTHROID [Concomitant]
  4. ESTRADIOL [Concomitant]
     Indication: OSTEOPOROSIS
     Dosage: 20 UG/DAY
     Dates: start: 20030619
  5. COZAAR [Concomitant]
  6. SYNTHROID [Concomitant]
  7. ESTRADIOL [Concomitant]

REACTIONS (6)
  - BONE PAIN [None]
  - DIZZINESS [None]
  - INJECTION SITE ERYTHEMA [None]
  - NAUSEA [None]
  - PAIN IN EXTREMITY [None]
  - SCRATCH [None]
